FAERS Safety Report 7224892-6 (Version None)
Quarter: 2011Q1

REPORT INFORMATION
  Report Type: 
  Country: None (occurrence: None)
  Receive Date: 20110113
  Receipt Date: 20110105
  Transmission Date: 20110831
  Serious: Yes (Other)
  Sender: FDA-Public Use
  Company Number: JP-ROCHE-752587

PATIENT
  Age: 61 Year
  Sex: Female

DRUGS (1)
  1. AVASTIN [Suspect]
     Indication: CHOROIDAL NEOVASCULARISATION
     Dosage: DOSAGE IS UNCERTAIN.
     Route: 031
     Dates: start: 20080401

REACTIONS (2)
  - RETINAL DETACHMENT [None]
  - MACULAR HOLE [None]
